FAERS Safety Report 18501597 (Version 1)
Quarter: 2020Q4

REPORT INFORMATION
  Report Type: Spontaneous
  Country: US (occurrence: US)
  Receive Date: 20201113
  Receipt Date: 20201113
  Transmission Date: 20210114
  Serious: No
  Sender: FDA-Public Use
  Company Number: US-BAUSCH-BL-2020-032091

PATIENT
  Age: 73 Year
  Sex: Female

DRUGS (4)
  1. LOTEMAX [Suspect]
     Active Substance: LOTEPREDNOL ETABONATE
     Indication: EYE PAIN
     Dosage: 1 DROP IN BOTH EYES
     Route: 047
     Dates: start: 20201020, end: 20201025
  2. LOTEMAX [Suspect]
     Active Substance: LOTEPREDNOL ETABONATE
     Indication: DRY EYE
  3. NEOMYCIN AND POLYMYXIN B SULFATES AND DEXAMETHASONE (ALCON) [Concomitant]
     Indication: PRODUCT USED FOR UNKNOWN INDICATION
     Route: 047
     Dates: end: 202010
  4. LOTEMAX [Suspect]
     Active Substance: LOTEPREDNOL ETABONATE
     Indication: EYE PRURITUS

REACTIONS (4)
  - Condition aggravated [Recovered/Resolved]
  - Intraocular pressure increased [Unknown]
  - Eye pain [Recovered/Resolved]
  - Therapeutic product effect delayed [Unknown]

NARRATIVE: CASE EVENT DATE: 202010
